FAERS Safety Report 4275214-4 (Version None)
Quarter: 2004Q1

REPORT INFORMATION
  Report Type: 
  Country: None (occurrence: None)
  Receive Date: 20040116
  Receipt Date: 20040106
  Transmission Date: 20041129
  Serious: Yes (Death)
  Sender: FDA-Public Use
  Company Number: 163-20785-03100665

PATIENT
  Age: 76 Year
  Sex: Male

DRUGS (2)
  1. THALOMID [Suspect]
     Indication: MALIGNANT MELANOMA
     Dosage: 400 MG, DAILY, ORAL;  200 MG, DAILY, ORAL
     Route: 048
     Dates: start: 20030703, end: 20030801
  2. THALOMID [Suspect]
     Indication: MALIGNANT MELANOMA
     Dosage: 400 MG, DAILY, ORAL;  200 MG, DAILY, ORAL
     Route: 048
     Dates: start: 20030801, end: 20030916

REACTIONS (1)
  - MALAISE [None]
